FAERS Safety Report 11398438 (Version 1)
Quarter: 2015Q3

REPORT INFORMATION
  Report Type: Spontaneous
  Country: US (occurrence: None)
  Receive Date: 20150818
  Receipt Date: 20150818
  Transmission Date: 20151125
  Serious: No
  Sender: FDA-Public Use
  Company Number: 15AE038

PATIENT
  Sex: Male

DRUGS (3)
  1. OMEPRAZOLE. [Concomitant]
     Active Substance: OMEPRAZOLE
  2. KIRKLAND IBUPROFEN [Suspect]
     Active Substance: IBUPROFEN
     Indication: ARTHRALGIA
     Dates: start: 20150731
  3. METFORMIN [Concomitant]
     Active Substance: METFORMIN HYDROCHLORIDE

REACTIONS (7)
  - Milk allergy [None]
  - Lactose intolerance [None]
  - Contraindicated drug administered [None]
  - Abdominal distension [None]
  - Flatulence [None]
  - Diarrhoea [None]
  - Reaction to drug excipients [None]

NARRATIVE: CASE EVENT DATE: 20150731
